FAERS Safety Report 5171117-1 (Version None)
Quarter: 2006Q4

REPORT INFORMATION
  Report Type: 
  Country: None (occurrence: None)
  Receive Date: 20061213
  Receipt Date: 20061204
  Transmission Date: 20070319
  Serious: Yes (Other)
  Sender: FDA-Public Use
  Company Number: 2006SE06504

PATIENT
  Age: 70 Year
  Sex: Female

DRUGS (4)
  1. BLOPRESS TABLETS 8 [Suspect]
     Indication: HYPERTENSION
     Route: 048
     Dates: end: 20061126
  2. DIGOXIN [Concomitant]
     Route: 048
  3. SUNRYTHM [Concomitant]
     Route: 065
  4. BUFFERIN [Concomitant]
     Route: 048

REACTIONS (4)
  - BLOOD PRESSURE DECREASED [None]
  - DIZZINESS [None]
  - PALPITATIONS [None]
  - SHOCK [None]
